FAERS Safety Report 17884821 (Version 8)
Quarter: 2024Q2

REPORT INFORMATION
  Report Type: Other
  Country: US (occurrence: None)
  Receive Date: 20200611
  Receipt Date: 20240610
  Transmission Date: 20240716
  Serious: Yes (Other)
  Sender: FDA-Public Use
  Company Number: US-ROCHE-2303986

PATIENT
  Age: 92 Year
  Sex: Female
  Weight: 67.192 kg

DRUGS (6)
  1. ACTEMRA [Suspect]
     Active Substance: TOCILIZUMAB
     Indication: Giant cell arteritis
     Route: 058
  2. ACTEMRA [Suspect]
     Active Substance: TOCILIZUMAB
  3. ACTEMRA [Suspect]
     Active Substance: TOCILIZUMAB
     Indication: Polymyalgia rheumatica
     Dosage: ONGOING: YES
     Route: 058
  4. ACTEMRA [Suspect]
     Active Substance: TOCILIZUMAB
  5. ACTEMRA [Suspect]
     Active Substance: TOCILIZUMAB
     Indication: Blindness
     Dosage: ONGOING: YES
     Route: 058
  6. ACTEMRA [Suspect]
     Active Substance: TOCILIZUMAB

REACTIONS (8)
  - Eye disorder [Unknown]
  - Confusional state [Unknown]
  - Vision blurred [Recovered/Resolved]
  - Vision blurred [Unknown]
  - Somnolence [Unknown]
  - Off label use [Unknown]
  - Hypoacusis [Unknown]
  - Blindness [Unknown]
